FAERS Safety Report 9027831 (Version 1)
Quarter: 2013Q1

REPORT INFORMATION
  Report Type: Spontaneous
  Country: US (occurrence: US)
  Receive Date: 20130124
  Receipt Date: 20130124
  Transmission Date: 20140127
  Serious: Yes (Other)
  Sender: FDA-Public Use
  Company Number: US-JNJFOC-20130109872

PATIENT
  Age: 68 Year
  Sex: Male
  Weight: 43.09 kg

DRUGS (1)
  1. EXTRA STRENGTH TYLENOL [Suspect]
     Indication: PAIN
     Dosage: 2 CAPLETS, EVERY 6 HOURS, THRICE A DAY, FOR 10- 12 YEARS
     Route: 048

REACTIONS (5)
  - Hepatic infection [Unknown]
  - Product quality issue [Unknown]
  - Product taste abnormal [Unknown]
  - Product physical issue [Unknown]
  - Drug ineffective [Unknown]
